FAERS Safety Report 5002176-4 (Version None)
Quarter: 2006Q2

REPORT INFORMATION
  Report Type: 
  Country: None (occurrence: None)
  Receive Date: 20060515
  Receipt Date: 20060330
  Transmission Date: 20061013
  Serious: Yes (Life-Threatening, Hospitalization, Other)
  Sender: FDA-Public Use
  Company Number: PHHO2006JP05414

PATIENT
  Age: 86 Year
  Sex: Male

DRUGS (12)
  1. DIOVAN [Suspect]
     Indication: HYPERTENSION
     Dosage: 80 MG, QD
     Route: 048
     Dates: start: 20030617
  2. STARSIS [Concomitant]
     Indication: DIABETES MELLITUS
  3. GLYCYRON [Concomitant]
     Indication: HEPATITIS C
  4. RENIVACE [Concomitant]
     Indication: HYPERTENSION
  5. ADALAT [Concomitant]
     Indication: HYPERTENSION
  6. FLUITRAN [Concomitant]
     Indication: HYPERTENSION
  7. ALLOPURINOL [Concomitant]
  8. SIGMART [Concomitant]
  9. HERBESSER [Concomitant]
  10. THYRADIN [Concomitant]
  11. FERO-GRADUMET [Concomitant]
  12. LASIX [Concomitant]

REACTIONS (6)
  - CARDIAC FAILURE [None]
  - DYSPNOEA [None]
  - HEPATIC NEOPLASM MALIGNANT [None]
  - LOWER LIMB FRACTURE [None]
  - OEDEMA PERIPHERAL [None]
  - PLEURAL EFFUSION [None]
